FAERS Safety Report 23275568 (Version 1)
Quarter: 2023Q4

REPORT INFORMATION
  Report Type: Report from Study
  Country: BR (occurrence: BR)
  Receive Date: 20231208
  Receipt Date: 20231208
  Transmission Date: 20240109
  Serious: Yes (Other)
  Sender: FDA-Public Use
  Company Number: BR-MYLANLABS-2023M1129331

PATIENT
  Sex: Male
  Weight: 72 kg

DRUGS (2)
  1. XALATAN [Suspect]
     Active Substance: LATANOPROST
     Indication: Blindness
     Dosage: UNK
     Route: 065
     Dates: start: 1993
  2. LATANOPROST\TIMOLOL MALEATE [Suspect]
     Active Substance: LATANOPROST\TIMOLOL MALEATE
     Indication: Blindness
     Dosage: 1 GTT DROPS (IN EACH EYE)
     Route: 047
     Dates: start: 2003

REACTIONS (3)
  - Cataract [Not Recovered/Not Resolved]
  - Blindness [Not Recovered/Not Resolved]
  - Off label use [Not Recovered/Not Resolved]
